FAERS Safety Report 5337454-2 (Version None)
Quarter: 2007Q2

REPORT INFORMATION
  Report Type: 
  Country: None (occurrence: None)
  Receive Date: 20070529
  Receipt Date: 20070525
  Transmission Date: 20071010
  Serious: Yes (Hospitalization)
  Sender: FDA-Public Use
  Company Number: PH-BOEHRINGER INGELHEIM PHARMACEUTICALS, INC.-2007-BP-06641SG

PATIENT
  Age: 70 Year
  Sex: Male

DRUGS (2)
  1. SPIRIVA [Suspect]
     Indication: CHRONIC OBSTRUCTIVE PULMONARY DISEASE
     Route: 055
  2. PREDNISOLONE [Concomitant]
     Route: 048

REACTIONS (1)
  - DYSPNOEA [None]
